FAERS Safety Report 9002095 (Version 2)
Quarter: 2013Q1

REPORT INFORMATION
  Report Type: Spontaneous
  Country: US (occurrence: US)
  Receive Date: 20130108
  Receipt Date: 20130115
  Transmission Date: 20140127
  Serious: No
  Sender: FDA-Public Use
  Company Number: US-009507513-1301USA002124

PATIENT
  Age: 55 Year
  Sex: Male

DRUGS (3)
  1. VICTRELIS [Suspect]
     Indication: HEPATITIS C
     Dosage: 800 MG, TID
     Route: 048
  2. RIBASPHERE [Suspect]
     Dosage: 1200 MG, QD
  3. PEGASYS [Suspect]
     Dosage: 180 MICROGRAM, QW

REACTIONS (6)
  - Cardiac murmur [Unknown]
  - Sluggishness [Unknown]
  - Pyrexia [Unknown]
  - Pruritus [Unknown]
  - Dyspnoea [Unknown]
  - Dizziness [Unknown]
